FAERS Safety Report 8872245 (Version 1)
Quarter: 2012Q4

REPORT INFORMATION
  Report Type: 
  Country: US (occurrence: US)
  Receive Date: 20121026
  Receipt Date: 20121026
  Transmission Date: 20130627
  Serious: No
  Sender: FDA-Public Use
  Company Number: US-AMGEN-USASP2012051620

PATIENT
  Age: 64 Year
  Sex: Female
  Weight: 81.63 kg

DRUGS (11)
  1. ENBREL [Suspect]
     Indication: PRODUCT USED FOR UNKNOWN INDICATION
     Dosage: 50 mg, qwk
     Route: 058
  2. HUMALOG [Concomitant]
     Dosage: 100 ml, UNK
  3. COZAAR [Concomitant]
     Dosage: 25 mg, UNK
  4. PROTONIX [Concomitant]
     Dosage: 20 mg, UNK
  5. AMLODIPINE [Concomitant]
     Dosage: 2.5 mg, UNK
  6. LANTUS [Concomitant]
     Dosage: 100 ml, UNK
  7. CLOBETASOL [Concomitant]
     Dosage: 0.05%
  8. VITAMIN D3 [Concomitant]
     Dosage: 400 unit, UNK
  9. NUGEL [Concomitant]
     Dosage: UNK
  10. VITAMIN B3 [Concomitant]
     Dosage: 100 mg, UNK
  11. ASA [Concomitant]
     Dosage: 81 mg, UNK

REACTIONS (1)
  - Tooth infection [Unknown]
